FAERS Safety Report 11167672 (Version 1)
Quarter: 2015Q2

REPORT INFORMATION
  Report Type: Spontaneous
  Country: US (occurrence: None)
  Receive Date: 20150604
  Receipt Date: 20150604
  Transmission Date: 20150821
  Serious: No
  Sender: FDA-Public Use
  Company Number: None

PATIENT
  Sex: Female
  Weight: 83.46 kg

DRUGS (7)
  1. LATUDA [Suspect]
     Active Substance: LURASIDONE HYDROCHLORIDE
     Indication: DEPRESSION
     Dosage: 20 MG 1 TABLET DAILY AT BEDTIME BY MOUTH
     Route: 048
     Dates: start: 20150326
  2. FISH OIL [Concomitant]
     Active Substance: FISH OIL
  3. LATUDA [Suspect]
     Active Substance: LURASIDONE HYDROCHLORIDE
     Indication: HALLUCINATION, AUDITORY
     Dosage: 20 MG 1 TABLET DAILY AT BEDTIME BY MOUTH
     Route: 048
     Dates: start: 20150326
  4. RESTIOL [Concomitant]
  5. CALTRATE [Concomitant]
     Active Substance: CALCIUM CARBONATE
  6. ONE-A-DAY NOS [Concomitant]
     Active Substance: MINERALS\VITAMINS
  7. ZOLOFT [Concomitant]
     Active Substance: SERTRALINE HYDROCHLORIDE

REACTIONS (2)
  - Palpitations [None]
  - Breast enlargement [None]
